FAERS Safety Report 23366263 (Version 1)
Quarter: 2024Q1

REPORT INFORMATION
  Report Type: Spontaneous
  Country: US (occurrence: US)
  Receive Date: 20240104
  Receipt Date: 20240104
  Transmission Date: 20240409
  Serious: Yes (Hospitalization)
  Sender: FDA-Public Use
  Company Number: US-BIOVITRUM-2024-US-000117

PATIENT
  Age: 2 Month
  Sex: Male

DRUGS (1)
  1. SYNAGIS [Suspect]
     Active Substance: PALIVIZUMAB
     Indication: Premature baby
     Dosage: EVERY 28DAYS -30DAYS
     Route: 030
     Dates: start: 20231201

REACTIONS (5)
  - Pallor [Unknown]
  - Lip discolouration [Unknown]
  - Gastrooesophageal reflux disease [Unknown]
  - Tremor [Unknown]
  - Tachycardia [Unknown]

NARRATIVE: CASE EVENT DATE: 20231230
